FAERS Safety Report 5114872-9 (Version None)
Quarter: 2006Q3

REPORT INFORMATION
  Report Type: 
  Country: None (occurrence: None)
  Receive Date: 20060921
  Receipt Date: 20060905
  Transmission Date: 20061208
  Serious: Yes (Hospitalization)
  Sender: FDA-Public Use
  Company Number: DSA_28692_2006

PATIENT
  Age: 9 Year
  Sex: 0
  Weight: 25 kg

DRUGS (3)
  1. RENIVACE [Suspect]
     Indication: RENAL HYPERTENSION
     Dosage: 5 MG QD PO
     Route: 048
     Dates: start: 20060724, end: 20060728
  2. PASETOCIN /0024901/ [Concomitant]
  3. ADALAT [Concomitant]

REACTIONS (2)
  - NEPHRITIS INTERSTITIAL [None]
  - RENAL FAILURE [None]
